FAERS Safety Report 24928326 (Version 4)
Quarter: 2025Q1

REPORT INFORMATION
  Report Type: Report from Study
  Country: US (occurrence: US)
  Receive Date: 20250205
  Receipt Date: 20250224
  Transmission Date: 20250409
  Serious: Yes (Disabling)
  Sender: ASTELLAS
  Company Number: US-ASTELLAS-2025-AER-006937

PATIENT
  Age: 52 Year
  Sex: Male

DRUGS (1)
  1. ISAVUCONAZOLE [Suspect]
     Active Substance: ISAVUCONAZOLE
     Indication: Antifungal treatment
     Route: 065
     Dates: start: 20250203

REACTIONS (2)
  - Amnesia [Unknown]
  - Brain fog [Unknown]
